FAERS Safety Report 13740526 (Version 1)
Quarter: 2017Q3

REPORT INFORMATION
  Report Type: Spontaneous
  Country: US (occurrence: US)
  Receive Date: 20170711
  Receipt Date: 20170711
  Transmission Date: 20171127
  Serious: No
  Sender: FDA-Public Use
  Company Number: US-IPSEN BIOPHARMACEUTICALS, INC.-2014-5004

PATIENT
  Age: 30 Year
  Sex: Female
  Weight: 63 kg

DRUGS (2)
  1. DYSPORT [Suspect]
     Active Substance: ABOBOTULINUMTOXINA
     Indication: PRODUCT USE IN UNAPPROVED INDICATION
  2. DYSPORT [Suspect]
     Active Substance: ABOBOTULINUMTOXINA
     Indication: SKIN WRINKLING
     Dosage: 50 UNITS IN TOTAL
     Route: 030
     Dates: start: 201409, end: 201409

REACTIONS (7)
  - Skin reaction [Recovering/Resolving]
  - Eye inflammation [Recovering/Resolving]
  - Neuromuscular toxicity [Recovering/Resolving]
  - Headache [Recovering/Resolving]
  - Urticaria [Recovering/Resolving]
  - Muscular weakness [Recovering/Resolving]
  - Dyspnoea [Recovering/Resolving]

NARRATIVE: CASE EVENT DATE: 201409
